FAERS Safety Report 5059194-X (Version None)
Quarter: 2006Q3

REPORT INFORMATION
  Report Type: 
  Country: None (occurrence: None)
  Receive Date: 20060718
  Receipt Date: 20060629
  Transmission Date: 20061208
  Serious: Yes (Other)
  Sender: FDA-Public Use
  Company Number: US200606006244

PATIENT
  Age: 72 Year
  Sex: Female

DRUGS (1)
  1. EVISTA [Suspect]
     Indication: OSTEOPENIA
     Dosage: ORAL
     Route: 048
     Dates: end: 20060101

REACTIONS (6)
  - BONE PAIN [None]
  - BURSITIS [None]
  - INSOMNIA [None]
  - JOINT EFFUSION [None]
  - MUSCLE SPASMS [None]
  - POLYARTHRITIS [None]
